FAERS Safety Report 5862063-6 (Version None)
Quarter: 2008Q3

REPORT INFORMATION
  Report Type: 
  Country: None (occurrence: None)
  Receive Date: 20080827
  Receipt Date: 20080827
  Transmission Date: 20090109
  Serious: Yes (Hospitalization)
  Sender: FDA-Public Use
  Company Number: None

PATIENT
  Age: 80 Year
  Sex: Male
  Weight: 88.9 kg

DRUGS (9)
  1. SORAFENIB [Suspect]
     Indication: PROSTATE CANCER
     Dosage: 200 MG TWICE A DAY PO
     Route: 048
     Dates: start: 20080421, end: 20080608
  2. AMIODARONE [Concomitant]
  3. CEFUROXIME [Concomitant]
  4. CHROMAGEN FORTE [Concomitant]
  5. LEVOFLOXACIN [Concomitant]
  6. ENOXAPARIN SODIUM [Concomitant]
  7. METOPROLOL TARTRATE [Concomitant]
  8. PREDNISONE TAB [Concomitant]
  9. VIT B12 [Concomitant]

REACTIONS (1)
  - PNEUMONIA [None]
